APPROVED DRUG PRODUCT: BENAZEPRIL HYDROCHLORIDE
Active Ingredient: BENAZEPRIL HYDROCHLORIDE
Strength: 20MG
Dosage Form/Route: TABLET;ORAL
Application: A078848 | Product #003 | TE Code: AB
Applicant: ZYDUS LIFESCIENCES LTD
Approved: May 23, 2008 | RLD: No | RS: No | Type: RX